FAERS Safety Report 18728539 (Version 2)
Quarter: 2021Q1

REPORT INFORMATION
  Report Type: Report from Study
  Country: None (occurrence: US)
  Receive Date: 20210112
  Receipt Date: 20210224
  Transmission Date: 20210419
  Serious: Yes (Other)
  Sender: FDA-Public Use
  Company Number: US-ABBVIE-21K-163-3722917-00

PATIENT
  Sex: Female

DRUGS (1)
  1. HUMIRA [Suspect]
     Active Substance: ADALIMUMAB
     Indication: ANKYLOSING SPONDYLITIS
     Route: 058
     Dates: start: 202007

REACTIONS (5)
  - Wound [Unknown]
  - Nerve compression [Unknown]
  - Illness [Unknown]
  - Intervertebral disc protrusion [Unknown]
  - Impaired healing [Recovering/Resolving]
